FAERS Safety Report 5448662-4 (Version None)
Quarter: 2007Q3

REPORT INFORMATION
  Report Type: 
  Country: None (occurrence: None)
  Receive Date: 20070906
  Receipt Date: 20070820
  Transmission Date: 20080115
  Serious: Yes (Life-Threatening)
  Sender: FDA-Public Use
  Company Number: 2007AP000912

PATIENT
  Age: 43 Year
  Sex: Female

DRUGS (5)
  1. LITHIUM CARBONATE CAP [Suspect]
     Indication: BIPOLAR DISORDER
     Dosage: 600 MG; BID
  2. NAPROXEN SODIUM [Concomitant]
  3. AMITRIPTYLINE HCL [Concomitant]
  4. MIRTAZAPINE [Concomitant]
  5. LITHIUM CARBONATE [Concomitant]

REACTIONS (16)
  - ANTIPSYCHOTIC DRUG LEVEL ABOVE THERAPEUTIC [None]
  - BLOOD BICARBONATE INCREASED [None]
  - BLOOD CREATININE INCREASED [None]
  - BLOOD POTASSIUM DECREASED [None]
  - BRADYCARDIA [None]
  - DEHYDRATION [None]
  - DRUG TOXICITY [None]
  - ELECTROCARDIOGRAM T WAVE AMPLITUDE DECREASED [None]
  - HAEMODIALYSIS [None]
  - HYPOCALCAEMIA [None]
  - HYPOCHLORAEMIA [None]
  - HYPOTENSION [None]
  - HYPOTHERMIA [None]
  - METABOLIC ALKALOSIS [None]
  - RENAL FAILURE [None]
  - SINOATRIAL BLOCK [None]
